FAERS Safety Report 18258685 (Version 1)
Quarter: 2020Q3

REPORT INFORMATION
  Report Type: Spontaneous
  Country: JP (occurrence: JP)
  Receive Date: 20200911
  Receipt Date: 20200911
  Transmission Date: 20201103
  Serious: Yes (Hospitalization, Other)
  Sender: FDA-Public Use
  Company Number: JP-009507513-2009JPN000443J

PATIENT
  Sex: Male

DRUGS (1)
  1. NU?LOTAN TABLETS 50MG [Suspect]
     Active Substance: LOSARTAN
     Indication: HYPERTENSION
     Dosage: 50 MILLIGRAM
     Route: 048
     Dates: start: 199808, end: 20151021

REACTIONS (10)
  - Depression [Unknown]
  - Meniere^s disease [Unknown]
  - Loss of consciousness [Unknown]
  - Dizziness [Recovered/Resolved]
  - Suicide attempt [Unknown]
  - Nausea [Recovered/Resolved]
  - Loss of consciousness [Unknown]
  - Dizziness postural [Recovered/Resolved]
  - Angina pectoris [Unknown]
  - Dizziness postural [Recovered/Resolved]

NARRATIVE: CASE EVENT DATE: 1998
